FAERS Safety Report 8172057-6 (Version None)
Quarter: 2012Q1

REPORT INFORMATION
  Report Type: 
  Country: None (occurrence: None)
  Receive Date: 20120228
  Receipt Date: 20120217
  Transmission Date: 20120608
  Serious: Yes (Death, Hospitalization)
  Sender: FDA-Public Use
  Company Number: JP-AMGEN-JPNCT2011050790

PATIENT
  Age: 68 Year
  Sex: Male
  Weight: 59 kg

DRUGS (10)
  1. CELECOXIB [Concomitant]
     Dosage: UNK
     Route: 048
  2. RABEPRAZOLE SODIUM [Concomitant]
     Dosage: UNK
     Route: 048
  3. MAGNESIUM SULFATE [Concomitant]
     Dosage: UNK
     Route: 048
  4. HIRUDOID [Concomitant]
     Route: 062
  5. PANITUMUMAB [Suspect]
     Indication: COLORECTAL CANCER
     Dosage: 6 MG/KG, Q2WK
     Route: 041
     Dates: start: 20101015, end: 20101102
  6. DECADRON [Concomitant]
     Dosage: UNK
     Route: 048
  7. LOCOID [Concomitant]
     Dosage: UNK
     Route: 062
  8. MYSER [Concomitant]
     Dosage: UNK
     Route: 062
  9. JUVELA [Concomitant]
     Dosage: UNK
     Route: 062
  10. MORPHINE [Concomitant]
     Dosage: UNK
     Route: 048

REACTIONS (4)
  - HYPERKALAEMIA [None]
  - ACNE [None]
  - RENAL DISORDER [None]
  - COLORECTAL CANCER [None]
